FAERS Safety Report 4313143-8 (Version None)
Quarter: 2004Q1

REPORT INFORMATION
  Report Type: 
  Country: None (occurrence: None)
  Receive Date: 20040304
  Receipt Date: 20040224
  Transmission Date: 20041129
  Serious: Yes (Hospitalization)
  Sender: FDA-Public Use
  Company Number: US-JNJFOC-20040205901

PATIENT
  Age: 78 Year
  Sex: Female

DRUGS (13)
  1. INFLIXIMAB (INFLIXIMAB, RECOMBINANT) LYOPHILIZED POWDER [Suspect]
     Indication: RHEUMATOID ARTHRITIS
     Dosage: INTRAVENOUS
     Route: 042
     Dates: start: 20010810, end: 20010810
  2. CELEBREX [Concomitant]
  3. PREDNISONE [Concomitant]
  4. ATENOLOL [Concomitant]
  5. NORVASC [Concomitant]
  6. METHOTREXATE [Concomitant]
  7. FOSAMAX [Concomitant]
  8. FOLIC ACID [Concomitant]
  9. TYLENOL [Concomitant]
  10. DARVOCET (PROPACET) [Concomitant]
  11. POTASSIUM [Concomitant]
  12. CALCIUM [Concomitant]
  13. MULTIVITAMIN (MULTIVITAMINS) [Concomitant]

REACTIONS (1)
  - ABDOMINAL PAIN [None]
